FAERS Safety Report 5651056-X (Version None)
Quarter: 2008Q1

REPORT INFORMATION
  Report Type: 
  Country: None (occurrence: None)
  Receive Date: 20080305
  Receipt Date: 20080229
  Transmission Date: 20080703
  Serious: Yes (Other)
  Sender: FDA-Public Use
  Company Number: B0499979A

PATIENT
  Age: 46 Year
  Sex: Male
  Weight: 90 kg

DRUGS (8)
  1. PAXIL [Suspect]
     Indication: DEPRESSION
     Dosage: 40MG PER DAY
     Route: 048
     Dates: start: 20060401, end: 20060607
  2. SOLANAX [Suspect]
     Indication: DEPRESSION
     Dosage: .8MG THREE TIMES PER DAY
     Route: 048
     Dates: start: 20060401, end: 20060607
  3. NITRAZEPAM [Suspect]
     Indication: INSOMNIA
     Dosage: 5MG TWICE PER DAY
     Route: 048
     Dates: start: 20060401, end: 20060607
  4. TRAZODONE HYDROCHLORIDE [Concomitant]
     Indication: DEPRESSION
     Dosage: 50MG PER DAY
     Route: 048
     Dates: start: 20060401
  5. AMOBAN [Concomitant]
     Indication: INSOMNIA
     Dosage: 7.5MG PER DAY
     Route: 048
     Dates: start: 20060607, end: 20060621
  6. DEPAS [Concomitant]
     Indication: INSOMNIA
     Dosage: .5MG PER DAY
     Route: 048
     Dates: start: 20060621
  7. TOLEDOMIN [Concomitant]
     Indication: DEPRESSION
     Dosage: 50MG PER DAY
     Route: 048
     Dates: start: 20060719, end: 20061010
  8. SEPAZON [Concomitant]
     Indication: DEPRESSION
     Dosage: 4MG PER DAY
     Route: 048
     Dates: start: 20060719, end: 20061010

REACTIONS (17)
  - ANOREXIA [None]
  - ASTHENIA [None]
  - DELIRIUM [None]
  - DEPRESSED LEVEL OF CONSCIOUSNESS [None]
  - DISTURBANCE IN ATTENTION [None]
  - DIZZINESS [None]
  - DRUG WITHDRAWAL SYNDROME [None]
  - GAIT DISTURBANCE [None]
  - HALLUCINATION, VISUAL [None]
  - INSOMNIA [None]
  - IRRITABILITY [None]
  - LISTLESS [None]
  - MEMORY IMPAIRMENT [None]
  - MUSCULAR WEAKNESS [None]
  - PERSECUTORY DELUSION [None]
  - SUICIDAL IDEATION [None]
  - TREMOR [None]
